FAERS Safety Report 12237066 (Version 1)
Quarter: 2016Q2

REPORT INFORMATION
  Report Type: Spontaneous
  Country: US (occurrence: US)
  Receive Date: 20160405
  Receipt Date: 20160405
  Transmission Date: 20160815
  Serious: Yes (Other)
  Sender: FDA-Public Use
  Company Number: US-SUN PHARMACEUTICAL INDUSTRIES LTD-2016US-113966

PATIENT
  Age: 9 Year
  Sex: Female

DRUGS (1)
  1. ISOTRETINOIN [Suspect]
     Active Substance: ISOTRETINOIN
     Indication: MEDULLOBLASTOMA
     Dosage: UNK
     Route: 065

REACTIONS (2)
  - Epiphyses premature fusion [Unknown]
  - Failure to thrive [Unknown]
